FAERS Safety Report 7211752-X (Version None)
Quarter: 2011Q1

REPORT INFORMATION
  Report Type: 
  Country: None (occurrence: None)
  Receive Date: 20110105
  Receipt Date: 20101228
  Transmission Date: 20110831
  Serious: Yes (Hospitalization)
  Sender: FDA-Public Use
  Company Number: CO-GENENTECH-311745

PATIENT
  Sex: Female

DRUGS (2)
  1. MABTHERA [Suspect]
     Indication: NON-HODGKIN'S LYMPHOMA
     Dosage: 700 MG, Q21D
     Route: 042
     Dates: start: 20100622, end: 20100713
  2. NEULASTIM [Suspect]
     Indication: NON-HODGKIN'S LYMPHOMA
     Dosage: 6 MG, UNK
     Dates: start: 20100623

REACTIONS (2)
  - PHLEBITIS [None]
  - CELLULITIS [None]
